FAERS Safety Report 4892116-0 (Version None)
Quarter: 2006Q1

REPORT INFORMATION
  Report Type: 
  Country: None (occurrence: None)
  Receive Date: 20060123
  Receipt Date: 20060111
  Transmission Date: 20060701
  Serious: No
  Sender: FDA-Public Use
  Company Number: 06H-087-0304479

PATIENT

DRUGS (5)
  1. MORPHINE SULFATE [Suspect]
     Indication: ANALGESIC THERAPY
     Dosage: 10 MILLIGRAM/MILLILITRES, CONTINUOUS INFUSION, EPIDURAL
     Route: 008
  2. NITROUS OXIDE W/ OXYGEN [Concomitant]
  3. NARCOTIC [Concomitant]
  4. LIDOCAINE [Concomitant]
  5. SALINE (SODIUM CHLORIDE) [Concomitant]

REACTIONS (1)
  - HYPOTENSION [None]
